FAERS Safety Report 8575440-X (Version None)
Quarter: 2012Q3

REPORT INFORMATION
  Report Type: 
  Country: None (occurrence: None)
  Receive Date: 20120807
  Receipt Date: 20120801
  Transmission Date: 20120928
  Serious: Yes (Other)
  Sender: FDA-Public Use
  Company Number: PHHY2011US39646

PATIENT
  Sex: Female

DRUGS (6)
  1. AFINITOR [Suspect]
     Dosage: 7.5 MG, DAILY
     Route: 048
  2. VIMPAT [Concomitant]
  3. AFINITOR [Suspect]
     Indication: ASTROCYTOMA, LOW GRADE
     Dosage: 7.5 MG, DAILY
     Route: 048
     Dates: start: 20091209
  4. CLARITIN [Concomitant]
  5. STRATTERA [Concomitant]
  6. ALLEGRA [Concomitant]

REACTIONS (5)
  - MOUTH HAEMORRHAGE [None]
  - HERPES DERMATITIS [None]
  - CONDITION AGGRAVATED [None]
  - WEIGHT DECREASED [None]
  - OBSESSIVE-COMPULSIVE DISORDER [None]
